FAERS Safety Report 11765814 (Version 2)
Quarter: 2016Q1

REPORT INFORMATION
  Report Type: Spontaneous
  Country: FR (occurrence: FR)
  Receive Date: 20151121
  Receipt Date: 20160122
  Transmission Date: 20160525
  Serious: Yes (Death)
  Sender: FDA-Public Use
  Company Number: FR-BAYER-2015-465320

PATIENT
  Age: 81 Year
  Sex: Female

DRUGS (9)
  1. LASILIX [Concomitant]
     Active Substance: FUROSEMIDE
     Dosage: 40 MG, UNK
  2. DIFFU K [Concomitant]
     Active Substance: POTASSIUM CHLORIDE
     Dosage: 600 MG, UNK
  3. ADEMPAS [Suspect]
     Active Substance: RIOCIGUAT
     Indication: PULMONARY HYPERTENSION
     Dosage: 1 MG, UNK
     Dates: start: 20150716
  4. XARELTO [Suspect]
     Active Substance: RIVAROXABAN
     Dosage: 15 MG, UNK
  5. THIOCOLCHICOSIDE [Suspect]
     Active Substance: THIOCOLCHICOSIDE
  6. DOLIPRANE [Suspect]
     Active Substance: ACETAMINOPHEN
  7. MODOPAR [Concomitant]
     Active Substance: BENSERAZIDE HYDROCHLORIDE\LEVODOPA
  8. INEXIUM [Concomitant]
     Active Substance: ESOMEPRAZOLE
     Dosage: 20 MG, UNK
  9. NOCTAMIDE [Concomitant]
     Active Substance: LORMETAZEPAM

REACTIONS (3)
  - General physical health deterioration [Fatal]
  - Cerebral haemorrhage [Fatal]
  - Thalamus haemorrhage [Fatal]
